FAERS Safety Report 21047298 (Version 1)
Quarter: 2022Q3

REPORT INFORMATION
  Report Type: Spontaneous
  Country: US (occurrence: None)
  Receive Date: 20220706
  Receipt Date: 20220706
  Transmission Date: 20221027
  Serious: Yes (Life-Threatening, Hospitalization)
  Sender: FDA-Public Use
  Company Number: None

PATIENT
  Sex: Female

DRUGS (1)
  1. CYPROHEPTADINE HYDROCHLORIDE\LYSINE HYDROCHLORIDE\VITAMINS [Suspect]
     Active Substance: CYPROHEPTADINE HYDROCHLORIDE\LYSINE HYDROCHLORIDE\VITAMINS

REACTIONS (3)
  - Illness [None]
  - Product complaint [None]
  - Prescription drug used without a prescription [None]
